FAERS Safety Report 6925804-2 (Version None)
Quarter: 2010Q3

REPORT INFORMATION
  Report Type: 
  Country: None (occurrence: None)
  Receive Date: 20100813
  Receipt Date: 20100813
  Transmission Date: 20110219
  Serious: Yes (Other)
  Sender: FDA-Public Use
  Company Number: None

PATIENT
  Age: 55 Year
  Sex: Female
  Weight: 46.7205 kg

DRUGS (1)
  1. HYDROCHLOROTHIAZIDE MICROZIDE [Suspect]
     Indication: JOINT SWELLING
     Dates: start: 20100623, end: 20100624

REACTIONS (7)
  - BREAST ENLARGEMENT [None]
  - DRUG PRESCRIBING ERROR [None]
  - JOINT SWELLING [None]
  - PAIN IN EXTREMITY [None]
  - PRURITUS [None]
  - RASH [None]
  - RESTLESSNESS [None]
